FAERS Safety Report 8513862-3 (Version None)
Quarter: 2012Q2

REPORT INFORMATION
  Report Type: 
  Country: None (occurrence: None)
  Receive Date: 20120406
  Receipt Date: 20101220
  Transmission Date: 20120825
  Serious: Yes (Other)
  Sender: FDA-Public Use
  Company Number: PHHY2010US61068

PATIENT
  Age: 68 Year
  Sex: Female

DRUGS (8)
  1. ATIVAN [Concomitant]
  2. ASASANTIN (ACETYLSALICYLIC ACID, DIPYRIDAMOLE) [Concomitant]
  3. TASIGNA [Suspect]
     Indication: CHRONIC MYELOID LEUKAEMIA
     Dosage: 300 MG, BID, ORAL
     Route: 048
     Dates: start: 20100907, end: 20100921
  4. TRIAMTERENE [Concomitant]
  5. WELLBUTRIN [Concomitant]
  6. COMPAZINE [Concomitant]
  7. AMBIEN [Concomitant]
  8. IMODIUM [Concomitant]

REACTIONS (6)
  - HYPOKALAEMIA [None]
  - LIVER FUNCTION TEST ABNORMAL [None]
  - ASPARTATE AMINOTRANSFERASE INCREASED [None]
  - URINARY TRACT INFECTION [None]
  - ALANINE AMINOTRANSFERASE INCREASED [None]
  - ELECTROCARDIOGRAM QT PROLONGED [None]
